FAERS Safety Report 11233446 (Version 1)
Quarter: 2015Q3

REPORT INFORMATION
  Report Type: Report from Study
  Country: GB (occurrence: GB)
  Receive Date: 20150702
  Receipt Date: 20150702
  Transmission Date: 20151125
  Serious: Yes (Death)
  Sender: FDA-Public Use
  Company Number: GB-ABBVIE-15K-167-1419044-00

PATIENT
  Sex: Male
  Weight: 76.2 kg

DRUGS (1)
  1. HUMIRA [Suspect]
     Active Substance: ADALIMUMAB
     Indication: PSORIASIS
     Route: 065
     Dates: start: 20131014, end: 20140205

REACTIONS (4)
  - Small cell lung cancer [Fatal]
  - Hypertension [Fatal]
  - Myocardial ischaemia [Fatal]
  - Pulmonary embolism [Fatal]
